FAERS Safety Report 8364233-4 (Version None)
Quarter: 2012Q1

REPORT INFORMATION
  Report Type: 
  Country: None (occurrence: None)
  Receive Date: 20120323
  Receipt Date: 20111212
  Transmission Date: 20120608
  Serious: Yes (Other)
  Sender: FDA-Public Use
  Company Number: 163-21880-11111538

PATIENT
  Age: 82 Year
  Sex: Female
  Weight: 76.2043 kg

DRUGS (3)
  1. REVLIMID [Suspect]
     Indication: MULTIPLE MYELOMA
     Dosage: 15 MG, 1 IN 1 D, PO, 10-15MG, PO, 15 MG, 1 IN 1 D, PO
     Route: 048
     Dates: start: 20101101
  2. REVLIMID [Suspect]
     Indication: MULTIPLE MYELOMA
     Dosage: 15 MG, 1 IN 1 D, PO, 10-15MG, PO, 15 MG, 1 IN 1 D, PO
     Route: 048
     Dates: start: 20090301
  3. REVLIMID [Suspect]
     Indication: MULTIPLE MYELOMA
     Dosage: 15 MG, 1 IN 1 D, PO, 10-15MG, PO, 15 MG, 1 IN 1 D, PO
     Route: 048
     Dates: start: 20090801

REACTIONS (2)
  - DIARRHOEA [None]
  - NEUTROPENIA [None]
